FAERS Safety Report 16053241 (Version 1)
Quarter: 2019Q1

REPORT INFORMATION
  Report Type: Spontaneous
  Country: NL (occurrence: NL)
  Receive Date: 20190308
  Receipt Date: 20190308
  Transmission Date: 20190418
  Serious: Yes (Death)
  Sender: FDA-Public Use
  Company Number: NL-TEVA-2019-NL-1019462

PATIENT
  Age: 54 Year
  Sex: Male
  Weight: 74 kg

DRUGS (6)
  1. IMMUNOGLOBULINE [Concomitant]
     Active Substance: HUMAN IMMUNOGLOBULIN G
     Dates: start: 20181217
  2. PARACETAMOL 1 GRAM [Concomitant]
     Dosage: 4DD 1 GRAM
     Dates: start: 20181207, end: 20181221
  3. THIAMINE 100MG [Concomitant]
     Dosage: 100 MILLIGRAM DAILY; 1DD100MG
     Dates: start: 20181208
  4. DEXAMETHASON [Concomitant]
     Active Substance: DEXAMETHASONE
     Dosage: 40 MILLIGRAM DAILY; 1DD40MG
     Dates: start: 20181216
  5. FLUCONAZOL CAPSULE, 200 MG (MILLIGRAM)FLUCONAZOL CAPSULE 200MG [Suspect]
     Active Substance: FLUCONAZOLE
     Indication: ORAL CANDIDIASIS
     Dosage: 200 MILLIGRAM DAILY; 1 DAAGS
     Dates: start: 20181217, end: 20181220
  6. BIKTARVY [Suspect]
     Active Substance: BICTEGRAVIR SODIUM\EMTRICITABINE\TENOFOVIR ALAFENAMIDE FUMARATE
     Indication: HIV INFECTION
     Dosage: 1 DOSAGE FORMS DAILY; 1 DAAGS
     Dates: start: 20181208, end: 20181220

REACTIONS (2)
  - Hepatic failure [Fatal]
  - Hepatitis [Fatal]

NARRATIVE: CASE EVENT DATE: 20181220
